FAERS Safety Report 4878516-3 (Version None)
Quarter: 2006Q1

REPORT INFORMATION
  Report Type: 
  Country: None (occurrence: None)
  Receive Date: 20060110
  Receipt Date: 20060110
  Transmission Date: 20060701
  Serious: Yes (Other)
  Sender: FDA-Public Use
  Company Number: None

PATIENT
  Age: 64 Year
  Sex: Male
  Weight: 81.6475 kg

DRUGS (1)
  1. LITHIUM CARBONATE CAPS 300 MG WESTWARD [Suspect]
     Dosage: 1 CAP FOUR TIMES DAILY

REACTIONS (3)
  - ABNORMAL BEHAVIOUR [None]
  - MEDICATION TAMPERING [None]
  - PHARMACEUTICAL PRODUCT COMPLAINT [None]
